FAERS Safety Report 19979853 (Version 3)
Quarter: 2023Q4

REPORT INFORMATION
  Report Type: Spontaneous
  Country: US (occurrence: US)
  Receive Date: 20211021
  Receipt Date: 20231008
  Transmission Date: 20240109
  Serious: Yes (Other)
  Sender: FDA-Public Use
  Company Number: US-JNJFOC-20210913711

PATIENT
  Age: 72 Year
  Sex: Female

DRUGS (15)
  1. ELMIRON [Suspect]
     Active Substance: PENTOSAN POLYSULFATE SODIUM
     Indication: Cystitis interstitial
     Route: 048
     Dates: start: 20030307, end: 20200218
  2. PERCOCET [Concomitant]
     Active Substance: ACETAMINOPHEN\OXYCODONE HYDROCHLORIDE
     Indication: Pain management
     Dates: start: 200912, end: 201907
  3. ANUCORT-HC [Concomitant]
     Active Substance: HYDROCORTISONE ACETATE
     Indication: Gastrointestinal disorder
     Dates: start: 200912, end: 202009
  4. CODEINE [Concomitant]
     Active Substance: CODEINE
     Indication: Pain management
     Dates: start: 200912, end: 202009
  5. DONNATAL [Concomitant]
     Active Substance: ATROPINE SULFATE\HYOSCYAMINE SULFATE\PHENOBARBITAL\SCOPOLAMINE HYDROBROMIDE
     Indication: Gastrointestinal disorder
     Dates: start: 200912, end: 202009
  6. NYSTATIN [Concomitant]
     Active Substance: NYSTATIN
     Indication: Fungal infection
     Dates: start: 200912, end: 202009
  7. PREMARIN [Concomitant]
     Active Substance: ESTROGENS, CONJUGATED
     Indication: Menopausal symptoms
     Dates: start: 200912, end: 202009
  8. PROCTOSOL HC [Concomitant]
     Indication: Gastrointestinal disorder
     Dates: start: 200912, end: 202009
  9. SYNTHROID [Concomitant]
     Active Substance: LEVOTHYROXINE SODIUM
     Indication: Hormone replacement therapy
     Dates: start: 200912, end: 202009
  10. VALIUM [Concomitant]
     Active Substance: DIAZEPAM
     Indication: Anxiety
     Dates: start: 200912, end: 202009
  11. BENICAR HCT [Concomitant]
     Active Substance: HYDROCHLOROTHIAZIDE\OLMESARTAN MEDOXOMIL
     Indication: Hypertension
     Dates: start: 200912, end: 201603
  12. PRILOSEC [Concomitant]
     Active Substance: OMEPRAZOLE MAGNESIUM
     Indication: Dyspepsia
     Dates: start: 200912, end: 201712
  13. TIGAN [Concomitant]
     Active Substance: TRIMETHOBENZAMIDE HYDROCHLORIDE
     Indication: Nausea
     Dates: start: 200912, end: 201712
  14. TIGAN [Concomitant]
     Active Substance: TRIMETHOBENZAMIDE HYDROCHLORIDE
     Indication: Vomiting
  15. HYDROCHLOROTHIAZIDE [Concomitant]
     Active Substance: HYDROCHLOROTHIAZIDE
     Indication: Hypertension
     Dates: start: 200912, end: 201712

REACTIONS (5)
  - Dry age-related macular degeneration [Not Recovered/Not Resolved]
  - Retinal pigmentation [Unknown]
  - Oedema peripheral [Unknown]
  - Alopecia [Unknown]
  - Drug ineffective [Unknown]

NARRATIVE: CASE EVENT DATE: 20101001
